FAERS Safety Report 6018239-0 (Version None)
Quarter: 2008Q4

REPORT INFORMATION
  Report Type: 
  Country: None (occurrence: None)
  Receive Date: 20081223
  Receipt Date: 20081217
  Transmission Date: 20090506
  Serious: Yes (Death)
  Sender: FDA-Public Use
  Company Number: GB-ELI_LILLY_AND_COMPANY-GB200808004125

PATIENT
  Sex: Female

DRUGS (8)
  1. PROZAC [Suspect]
     Indication: DEPRESSIVE SYMPTOM
     Dosage: 20 MG, DAILY (1/D)
     Route: 048
     Dates: start: 20070524, end: 20070601
  2. PROZAC [Suspect]
     Dosage: 40 MG, DAILY (1/D)
     Route: 048
     Dates: start: 20070601
  3. AMISULPRIDE [Concomitant]
     Indication: PSYCHOTIC DISORDER
     Dosage: 400 MG, 2/D
     Route: 048
     Dates: start: 20070227
  4. SOLIAN [Concomitant]
     Dosage: 1200 MG, UNK
     Dates: start: 20070501, end: 20070601
  5. PIPORTIL [Concomitant]
     Indication: PSYCHOTIC DISORDER
     Dosage: 100 MG, 2/D
     Route: 030
  6. RISPERIDONE [Concomitant]
     Indication: PSYCHOTIC DISORDER
     Dosage: 4 MG, 2/D
     Route: 048
     Dates: start: 20061031
  7. SERTRALINE [Concomitant]
     Indication: DEPRESSION
     Dosage: 150 MG, UNK
     Dates: end: 20070501
  8. PROCYCLIDINE HYDROCHLORIDE 2MG TAB [Concomitant]
     Indication: PARKINSONISM
     Dosage: 5 MG, 2/D
     Route: 048

REACTIONS (2)
  - DEATH [None]
  - DRUG INTERACTION [None]
